FAERS Safety Report 4665545-8 (Version None)
Quarter: 2005Q2

REPORT INFORMATION
  Report Type: 
  Country: None (occurrence: None)
  Receive Date: 20050517
  Receipt Date: 20050505
  Transmission Date: 20051028
  Serious: Yes (Other)
  Sender: FDA-Public Use
  Company Number: 2005072247

PATIENT
  Age: 64 Year
  Sex: Male
  Weight: 73.4827 kg

DRUGS (5)
  1. BEXTRA [Suspect]
     Indication: ARTHRITIS
     Dosage: 10 MG (10 MG, 1 IN 1 AS NECESSARY), ORAL
     Route: 048
     Dates: start: 20050201, end: 20050101
  2. ADVICOR [Suspect]
     Indication: BLOOD CHOLESTEROL INCREASED
     Dosage: 1 IN 1 D
     Dates: start: 20041001, end: 20050101
  3. LANSOPRAZOLE [Concomitant]
  4. MULTIVITAMINS (ASCORBIC ACID, ERGOCALCIFEROL, FOLIC ACID, NICOTINAMIDE [Concomitant]
  5. TAMSULOSIN HCL [Concomitant]

REACTIONS (8)
  - DRUG INEFFECTIVE [None]
  - HYPERSENSITIVITY [None]
  - PRURITUS [None]
  - SCRATCH [None]
  - SKIN BURNING SENSATION [None]
  - SKIN REACTION [None]
  - TENSION [None]
  - URTICARIA GENERALISED [None]
